FAERS Safety Report 8395619-X (Version None)
Quarter: 2012Q2

REPORT INFORMATION
  Report Type: 
  Country: None (occurrence: None)
  Receive Date: 20120530
  Receipt Date: 20111122
  Transmission Date: 20120825
  Serious: No
  Sender: FDA-Public Use
  Company Number: US-GLAXOSMITHKLINE-A0955556A

PATIENT
  Age: 56 Year
  Sex: Female

DRUGS (4)
  1. VENTOLIN [Suspect]
     Dosage: 90MCG UNKNOWN
     Route: 065
     Dates: start: 20110915, end: 20111012
  2. LORATADINE [Concomitant]
     Dosage: 10MG AS REQUIRED
     Route: 048
  3. VALIUM [Concomitant]
     Dosage: 5MG AS REQUIRED
     Route: 048
  4. IBUPROFEN [Concomitant]
     Dosage: 800MG AS REQUIRED
     Route: 048

REACTIONS (3)
  - ANXIETY [None]
  - DRUG INEFFECTIVE [None]
  - FEELING JITTERY [None]
